FAERS Safety Report 8420806-1 (Version None)
Quarter: 2012Q2

REPORT INFORMATION
  Report Type: 
  Country: None (occurrence: None)
  Receive Date: 20120608
  Receipt Date: 20120605
  Transmission Date: 20120825
  Serious: No
  Sender: FDA-Public Use
  Company Number: US-PFIZER INC-2012119656

PATIENT
  Sex: Female

DRUGS (2)
  1. GABAPENTIN [Suspect]
     Dosage: UNK
  2. LYRICA [Suspect]
     Dosage: 75 MG, 2X/DAY

REACTIONS (1)
  - DRUG INEFFECTIVE [None]
